FAERS Safety Report 13920893 (Version 2)
Quarter: 2017Q3

REPORT INFORMATION
  Report Type: Spontaneous
  Country: JP (occurrence: JP)
  Receive Date: 20170830
  Receipt Date: 20170915
  Transmission Date: 20171127
  Serious: Yes (Other)
  Sender: FDA-Public Use
  Company Number: JP-SHIRE-JP201719923

PATIENT

DRUGS (9)
  1. NOVOEIGHT [Suspect]
     Active Substance: ANTIHEMOPHILIC FACTOR, HUMAN RECOMBINANT
     Indication: HAEMOSTASIS
     Dosage: 6000 IU, 3X A WEEK
     Route: 042
     Dates: start: 20170607, end: 20170628
  2. NOVOSEVEN [Concomitant]
     Active Substance: COAGULATION FACTOR VIIA RECOMBINANT HUMAN
     Indication: HAEMOSTASIS
     Dosage: UNK
     Route: 042
  3. NOVOSEVEN [Concomitant]
     Active Substance: COAGULATION FACTOR VIIA RECOMBINANT HUMAN
     Dosage: UNK
     Route: 042
     Dates: start: 20170628, end: 201707
  4. FEIBA NF [Suspect]
     Active Substance: ANTI-INHIBITOR COAGULANT COMPLEX
     Indication: HAEMOSTASIS
     Dosage: UNK
     Route: 042
  5. NOVOEIGHT [Suspect]
     Active Substance: ANTIHEMOPHILIC FACTOR, HUMAN RECOMBINANT
     Dosage: 6000 IU, 3X A WEEK
     Route: 042
     Dates: start: 20170704
  6. FEIBA NF [Suspect]
     Active Substance: ANTI-INHIBITOR COAGULANT COMPLEX
     Dosage: 6000 IU, 3X A WEEK
     Route: 042
     Dates: start: 20170704
  7. FEIBA NF [Suspect]
     Active Substance: ANTI-INHIBITOR COAGULANT COMPLEX
     Dosage: 6000 IU, 3X A WEEK
     Route: 042
     Dates: end: 20170628
  8. FEIBA NF [Suspect]
     Active Substance: ANTI-INHIBITOR COAGULANT COMPLEX
     Dosage: 6000 IU, QOD
     Route: 042
  9. NOVOSEVEN [Concomitant]
     Active Substance: COAGULATION FACTOR VIIA RECOMBINANT HUMAN
     Dosage: UNK
     Route: 042
     Dates: start: 201705

REACTIONS (5)
  - Haemarthrosis [Unknown]
  - Factor VIII inhibition [Not Recovered/Not Resolved]
  - Inguinal hernia [Unknown]
  - Injury [Unknown]
  - Joint swelling [Unknown]

NARRATIVE: CASE EVENT DATE: 201705
